FAERS Safety Report 8526349 (Version 7)
Quarter: 2012Q4

REPORT INFORMATION
  Report Type: Report from Study
  Country: KR (occurrence: KR)
  Receive Date: 20120423
  Receipt Date: 20121212
  Transmission Date: 20130627
  Serious: Yes (Death, Hospitalization)
  Sender: FDA-Public Use
  Company Number: KR-UCBSA-055230

PATIENT
  Age: 65 Year
  Sex: Female
  Weight: 55.5 kg

DRUGS (286)
  1. CERTOLIZUMAB PEGOL [Suspect]
     Indication: RHEUMATOID ARTHRITIS
     Dosage: DOSE: 200 MG
     Route: 058
     Dates: start: 20100707, end: 20120410
  2. METHOTREXATE [Concomitant]
     Indication: RHEUMATOID ARTHRITIS
     Route: 048
     Dates: start: 20090901, end: 20120410
  3. METHOTREXATE [Concomitant]
     Indication: RHEUMATOID ARTHRITIS
     Route: 048
     Dates: start: 20120430, end: 20120430
  4. METHOTREXATE [Concomitant]
     Indication: RHEUMATOID ARTHRITIS
     Route: 048
     Dates: start: 20120427, end: 20120427
  5. CHEMOTHERAPY [Concomitant]
     Dosage: UNKNOWN DOSE
     Dates: start: 20120428, end: 20120430
  6. TRANEXAMIC ACID [Concomitant]
     Indication: PROPHYLAXIS
     Route: 042
     Dates: start: 20120411, end: 20120413
  7. TRANEXAMIC ACID [Concomitant]
     Indication: PROPHYLAXIS
     Route: 042
     Dates: start: 20120416, end: 20120417
  8. TRANEXAMIC ACID [Concomitant]
     Indication: PROPHYLAXIS
     Route: 042
     Dates: start: 20120412, end: 20120413
  9. TRANEXAMIC ACID [Concomitant]
     Indication: PROPHYLAXIS
     Route: 042
     Dates: start: 20120411, end: 20120417
  10. NORMAL SALINE [Concomitant]
     Indication: DEHYDRATION
     Dosage: BG
     Route: 042
     Dates: start: 20120411, end: 20120413
  11. NORMAL SALINE [Concomitant]
     Indication: FLUID REPLACEMENT
     Dosage: BG
     Route: 042
     Dates: start: 20120411, end: 20120413
  12. NORMAL SALINE [Concomitant]
     Indication: MEDICATION DILUTION
     Dosage: BG
     Route: 042
     Dates: start: 20120411, end: 20120413
  13. NORMAL SALINE [Concomitant]
     Indication: DEHYDRATION
     Dosage: BG
     Route: 042
     Dates: start: 20120416, end: 20120417
  14. NORMAL SALINE [Concomitant]
     Indication: FLUID REPLACEMENT
     Dosage: BG
     Route: 042
     Dates: start: 20120416, end: 20120417
  15. NORMAL SALINE [Concomitant]
     Indication: MEDICATION DILUTION
     Dosage: BG
     Route: 042
     Dates: start: 20120416, end: 20120417
  16. NORMAL SALINE [Concomitant]
     Indication: DEHYDRATION
     Dosage: BG
     Route: 042
     Dates: start: 20120421, end: 20120421
  17. NORMAL SALINE [Concomitant]
     Indication: FLUID REPLACEMENT
     Dosage: BG
     Route: 042
     Dates: start: 20120421, end: 20120421
  18. NORMAL SALINE [Concomitant]
     Indication: MEDICATION DILUTION
     Dosage: BG
     Route: 042
     Dates: start: 20120421, end: 20120421
  19. NORMAL SALINE [Concomitant]
     Indication: DEHYDRATION
     Dosage: BG
     Route: 042
     Dates: start: 20120425, end: 20120425
  20. NORMAL SALINE [Concomitant]
     Indication: FLUID REPLACEMENT
     Dosage: BG
     Route: 042
     Dates: start: 20120425, end: 20120425
  21. NORMAL SALINE [Concomitant]
     Indication: MEDICATION DILUTION
     Dosage: BG
     Route: 042
     Dates: start: 20120425, end: 20120425
  22. NORMAL SALINE [Concomitant]
     Indication: DEHYDRATION
     Dosage: BG
     Route: 042
     Dates: start: 20120427, end: 20120427
  23. NORMAL SALINE [Concomitant]
     Indication: FLUID REPLACEMENT
     Dosage: BG
     Route: 042
     Dates: start: 20120427, end: 20120427
  24. NORMAL SALINE [Concomitant]
     Indication: MEDICATION DILUTION
     Dosage: BG
     Route: 042
     Dates: start: 20120427, end: 20120427
  25. NORMAL SALINE [Concomitant]
     Indication: DEHYDRATION
     Dosage: BG
     Route: 042
     Dates: start: 20120428, end: 20120428
  26. NORMAL SALINE [Concomitant]
     Indication: FLUID REPLACEMENT
     Dosage: BG
     Route: 042
     Dates: start: 20120428, end: 20120428
  27. NORMAL SALINE [Concomitant]
     Indication: MEDICATION DILUTION
     Dosage: BG
     Route: 042
     Dates: start: 20120428, end: 20120428
  28. NORMAL SALINE [Concomitant]
     Indication: DEHYDRATION
     Route: 042
     Dates: start: 20120427, end: 20120427
  29. NORMAL SALINE [Concomitant]
     Indication: FLUID REPLACEMENT
     Route: 042
     Dates: start: 20120427, end: 20120427
  30. NORMAL SALINE [Concomitant]
     Indication: MEDICATION DILUTION
     Route: 042
     Dates: start: 20120427, end: 20120427
  31. NORMAL SALINE [Concomitant]
     Indication: DEHYDRATION
     Route: 042
     Dates: start: 20120511, end: 20120512
  32. NORMAL SALINE [Concomitant]
     Indication: FLUID REPLACEMENT
     Route: 042
     Dates: start: 20120511, end: 20120512
  33. NORMAL SALINE [Concomitant]
     Indication: MEDICATION DILUTION
     Route: 042
     Dates: start: 20120511, end: 20120512
  34. NORMAL SALINE [Concomitant]
     Indication: DEHYDRATION
     Dosage: 500 ml once daily and 100 ml once daily
     Route: 042
     Dates: start: 20120522, end: 20120524
  35. NORMAL SALINE [Concomitant]
     Indication: FLUID REPLACEMENT
     Dosage: 500 ml once daily and 100 ml once daily
     Route: 042
     Dates: start: 20120522, end: 20120524
  36. NORMAL SALINE [Concomitant]
     Indication: MEDICATION DILUTION
     Dosage: 500 ml once daily and 100 ml once daily
     Route: 042
     Dates: start: 20120522, end: 20120524
  37. NORMAL SALINE [Concomitant]
     Indication: DEHYDRATION
     Dosage: 100 ML ONCE DAILY, 500 ML ONCe daily on 16-JUN-2012
     Route: 042
     Dates: start: 20120615, end: 20120617
  38. NORMAL SALINE [Concomitant]
     Indication: FLUID REPLACEMENT
     Dosage: 100 ML ONCE DAILY, 500 ML ONCe daily on 16-JUN-2012
     Route: 042
     Dates: start: 20120615, end: 20120617
  39. NORMAL SALINE [Concomitant]
     Indication: MEDICATION DILUTION
     Dosage: 100 ML ONCE DAILY, 500 ML ONCe daily on 16-JUN-2012
     Route: 042
     Dates: start: 20120615, end: 20120617
  40. NORMAL SALINE [Concomitant]
     Indication: DEHYDRATION
     Route: 042
     Dates: start: 20120629, end: 20120629
  41. NORMAL SALINE [Concomitant]
     Indication: FLUID REPLACEMENT
     Route: 042
     Dates: start: 20120629, end: 20120629
  42. NORMAL SALINE [Concomitant]
     Indication: MEDICATION DILUTION
     Route: 042
     Dates: start: 20120629, end: 20120629
  43. NORMAL SALINE [Concomitant]
     Indication: DEHYDRATION
     Route: 042
     Dates: start: 20120707, end: 20120709
  44. NORMAL SALINE [Concomitant]
     Indication: FLUID REPLACEMENT
     Route: 042
     Dates: start: 20120707, end: 20120709
  45. NORMAL SALINE [Concomitant]
     Indication: MEDICATION DILUTION
     Route: 042
     Dates: start: 20120707, end: 20120709
  46. NORMAL SALINE [Concomitant]
     Indication: DEHYDRATION
     Route: 042
     Dates: start: 20120709, end: 20120709
  47. NORMAL SALINE [Concomitant]
     Indication: FLUID REPLACEMENT
     Route: 042
     Dates: start: 20120709, end: 20120709
  48. NORMAL SALINE [Concomitant]
     Indication: MEDICATION DILUTION
     Route: 042
     Dates: start: 20120709, end: 20120709
  49. NORMAL SALINE [Concomitant]
     Indication: DEHYDRATION
     Route: 042
     Dates: start: 20120710, end: 20120710
  50. NORMAL SALINE [Concomitant]
     Indication: FLUID REPLACEMENT
     Route: 042
     Dates: start: 20120710, end: 20120710
  51. NORMAL SALINE [Concomitant]
     Indication: MEDICATION DILUTION
     Route: 042
     Dates: start: 20120710, end: 20120710
  52. NORMAL SALINE [Concomitant]
     Indication: DEHYDRATION
     Route: 042
     Dates: start: 20120720, end: 20120721
  53. NORMAL SALINE [Concomitant]
     Indication: FLUID REPLACEMENT
     Route: 042
     Dates: start: 20120720, end: 20120721
  54. NORMAL SALINE [Concomitant]
     Indication: MEDICATION DILUTION
     Route: 042
     Dates: start: 20120720, end: 20120721
  55. NORMAL SALINE [Concomitant]
     Indication: DEHYDRATION
     Route: 042
     Dates: start: 20120722, end: 20120722
  56. NORMAL SALINE [Concomitant]
     Indication: FLUID REPLACEMENT
     Route: 042
     Dates: start: 20120722, end: 20120722
  57. NORMAL SALINE [Concomitant]
     Indication: MEDICATION DILUTION
     Route: 042
     Dates: start: 20120722, end: 20120722
  58. NORMAL SALINE [Concomitant]
     Indication: DEHYDRATION
     Route: 042
     Dates: start: 20120723, end: 20120724
  59. NORMAL SALINE [Concomitant]
     Indication: FLUID REPLACEMENT
     Route: 042
     Dates: start: 20120723, end: 20120724
  60. NORMAL SALINE [Concomitant]
     Indication: MEDICATION DILUTION
     Route: 042
     Dates: start: 20120723, end: 20120724
  61. NORMAL SALINE [Concomitant]
     Indication: DEHYDRATION
     Route: 042
     Dates: start: 20120725, end: 20120725
  62. NORMAL SALINE [Concomitant]
     Indication: FLUID REPLACEMENT
     Route: 042
     Dates: start: 20120725, end: 20120725
  63. NORMAL SALINE [Concomitant]
     Indication: MEDICATION DILUTION
     Route: 042
     Dates: start: 20120725, end: 20120725
  64. NORMAL SALINE [Concomitant]
     Indication: DEHYDRATION
     Route: 055
     Dates: start: 20120723, end: 20120724
  65. NORMAL SALINE [Concomitant]
     Indication: FLUID REPLACEMENT
     Route: 055
     Dates: start: 20120723, end: 20120724
  66. NORMAL SALINE [Concomitant]
     Indication: MEDICATION DILUTION
     Route: 055
     Dates: start: 20120723, end: 20120724
  67. NORMAL SALINE [Concomitant]
     Indication: DEHYDRATION
     Route: 055
     Dates: start: 20120730, end: 20120730
  68. NORMAL SALINE [Concomitant]
     Indication: FLUID REPLACEMENT
     Route: 055
     Dates: start: 20120730, end: 20120730
  69. NORMAL SALINE [Concomitant]
     Indication: MEDICATION DILUTION
     Route: 055
     Dates: start: 20120730, end: 20120730
  70. NORMAL SALINE [Concomitant]
     Indication: DEHYDRATION
     Route: 042
     Dates: start: 20120731, end: 20120802
  71. NORMAL SALINE [Concomitant]
     Indication: FLUID REPLACEMENT
     Route: 042
     Dates: start: 20120731, end: 20120802
  72. NORMAL SALINE [Concomitant]
     Indication: MEDICATION DILUTION
     Route: 042
     Dates: start: 20120731, end: 20120802
  73. NORMAL SALINE [Concomitant]
     Indication: DEHYDRATION
     Route: 042
     Dates: start: 20120731, end: 20120802
  74. NORMAL SALINE [Concomitant]
     Indication: FLUID REPLACEMENT
     Route: 042
     Dates: start: 20120731, end: 20120802
  75. NORMAL SALINE [Concomitant]
     Indication: MEDICATION DILUTION
     Route: 042
     Dates: start: 20120731, end: 20120802
  76. NORMAL SALINE [Concomitant]
     Indication: DEHYDRATION
     Dosage: 500 ML AND 100 ML
     Route: 042
     Dates: start: 20120830, end: 20120901
  77. NORMAL SALINE [Concomitant]
     Indication: FLUID REPLACEMENT
     Dosage: 500 ML AND 100 ML
     Route: 042
     Dates: start: 20120830, end: 20120901
  78. NORMAL SALINE [Concomitant]
     Indication: MEDICATION DILUTION
     Dosage: 500 ML AND 100 ML
     Route: 042
     Dates: start: 20120830, end: 20120901
  79. NORMAL SALINE [Concomitant]
     Indication: DEHYDRATION
     Route: 042
     Dates: start: 20121016, end: 20121028
  80. NORMAL SALINE [Concomitant]
     Indication: FLUID REPLACEMENT
     Route: 042
     Dates: start: 20121016, end: 20121028
  81. NORMAL SALINE [Concomitant]
     Indication: MEDICATION DILUTION
     Route: 042
     Dates: start: 20121016, end: 20121028
  82. NORMAL SALINE [Concomitant]
     Indication: DEHYDRATION
     Route: 042
     Dates: start: 20121102, end: 20121103
  83. NORMAL SALINE [Concomitant]
     Indication: FLUID REPLACEMENT
     Route: 042
     Dates: start: 20121102, end: 20121103
  84. NORMAL SALINE [Concomitant]
     Indication: MEDICATION DILUTION
     Route: 042
     Dates: start: 20121102, end: 20121103
  85. NORMAL SALINE [Concomitant]
     Indication: DEHYDRATION
     Route: 042
     Dates: start: 20121103, end: 20121105
  86. NORMAL SALINE [Concomitant]
     Indication: FLUID REPLACEMENT
     Route: 042
     Dates: start: 20121103, end: 20121105
  87. NORMAL SALINE [Concomitant]
     Indication: MEDICATION DILUTION
     Route: 042
     Dates: start: 20121103, end: 20121105
  88. CEFODIZIME SODIUM [Concomitant]
     Indication: PROPHYLAXIS
     Route: 042
     Dates: start: 20120411, end: 20120426
  89. CEFODIZIME SODIUM [Concomitant]
     Indication: PROPHYLAXIS
     Route: 042
     Dates: start: 20121016, end: 20121026
  90. CEFODIZIME SODIUM [Concomitant]
     Indication: PROPHYLAXIS
     Route: 042
     Dates: start: 20121027, end: 20121027
  91. MULTIVITAMIN [Concomitant]
     Indication: VITAMIN SUPPLEMENTATION
     Dosage: 5 CC
     Route: 042
     Dates: start: 20120411, end: 20120413
  92. MULTIVITAMIN [Concomitant]
     Indication: VITAMIN SUPPLEMENTATION
     Route: 042
     Dates: start: 20120416, end: 20120416
  93. MULTIVITAMIN [Concomitant]
     Indication: VITAMIN SUPPLEMENTATION
     Dosage: 5 CC
     Route: 042
     Dates: start: 20120510, end: 20120511
  94. ZINC SULFATE HEPTAHYDRATE [Concomitant]
     Indication: MINERAL SUPPLEMENTATION
     Dosage: 4.39 M
     Route: 042
     Dates: start: 20120414, end: 20120414
  95. DEXTROSE [Concomitant]
     Indication: DEHYDRATION
     Dosage: 5 %, IN DISTILLED WATER
     Route: 042
     Dates: start: 20120411, end: 20120416
  96. CLARITHROMYCIN [Concomitant]
     Indication: PROPHYLAXIS
     Route: 048
     Dates: start: 20120411, end: 20120426
  97. CLARITHROMYCIN [Concomitant]
     Indication: PROPHYLAXIS
     Route: 048
     Dates: start: 20121016, end: 20121028
  98. LEVO-CLOPERASTINE FENDIZOATE [Concomitant]
     Indication: COUGH
     Route: 048
     Dates: start: 20120411, end: 20120428
  99. LEVO-CLOPERASTINE FENDIZOATE [Concomitant]
     Indication: COUGH
     Route: 048
     Dates: start: 201205, end: 201205
  100. LEVO-CLOPERASTINE FENDIZOATE [Concomitant]
     Indication: COUGH
     Route: 048
     Dates: start: 20120521, end: 20120602
  101. LEVO-CLOPERASTINE FENDIZOATE [Concomitant]
     Indication: COUGH
     Route: 048
     Dates: start: 20120511, end: 20120512
  102. LEVO-CLOPERASTINE FENDIZOATE [Concomitant]
     Indication: COUGH
     Route: 048
     Dates: start: 20120614, end: 20120626
  103. LEVO-CLOPERASTINE FENDIZOATE [Concomitant]
     Indication: COUGH
     Route: 048
     Dates: start: 20120628, end: 20120709
  104. LEVO-CLOPERASTINE FENDIZOATE [Concomitant]
     Indication: COUGH
     Route: 048
     Dates: start: 20120708, end: 20120719
  105. LEVO-CLOPERASTINE FENDIZOATE [Concomitant]
     Indication: COUGH
     Route: 048
     Dates: start: 20120719, end: 20120730
  106. LEVO-CLOPERASTINE FENDIZOATE [Concomitant]
     Indication: COUGH
     Route: 048
     Dates: start: 20120730, end: 20120813
  107. LEVO-CLOPERASTINE FENDIZOATE [Concomitant]
     Indication: COUGH
     Route: 048
     Dates: start: 20121016, end: 20121113
  108. FAMOTIDINE [Concomitant]
     Indication: PROPHYLAXIS
     Route: 048
     Dates: start: 20060420, end: 20110425
  109. FAMOTIDINE [Concomitant]
     Indication: PROPHYLAXIS
     Route: 048
     Dates: start: 20120411, end: 20120507
  110. FAMOTIDINE [Concomitant]
     Indication: PROPHYLAXIS
     Route: 042
     Dates: start: 20121102, end: 20121102
  111. ERDOSTEIN [Concomitant]
     Indication: COUGH
     Route: 048
     Dates: start: 20120411, end: 20120507
  112. ERDOSTEIN [Concomitant]
     Indication: COUGH
     Route: 048
     Dates: start: 20120510, end: 20120517
  113. ERDOSTEIN [Concomitant]
     Indication: COUGH
     Route: 048
     Dates: start: 20120521, end: 20120602
  114. ERDOSTEIN [Concomitant]
     Indication: COUGH
     Route: 048
     Dates: start: 20120614, end: 20120626
  115. ERDOSTEIN [Concomitant]
     Indication: COUGH
     Route: 048
     Dates: start: 20120628, end: 20120709
  116. ERDOSTEIN [Concomitant]
     Indication: COUGH
     Route: 048
     Dates: start: 20120710, end: 20120710
  117. ERDOSTEIN [Concomitant]
     Indication: COUGH
     Route: 048
     Dates: start: 20120709, end: 20120709
  118. ERDOSTEIN [Concomitant]
     Indication: COUGH
     Route: 048
     Dates: start: 20120724, end: 20120730
  119. ERDOSTEIN [Concomitant]
     Indication: COUGH
     Route: 048
     Dates: start: 20120730, end: 20120813
  120. ERDOSTEIN [Concomitant]
     Indication: COUGH
     Route: 048
     Dates: start: 20121016, end: 20121113
  121. CODEINE PHOSPHATE [Concomitant]
     Indication: COUGH
     Route: 048
     Dates: start: 20120411, end: 20120413
  122. CODEINE PHOSPHATE [Concomitant]
     Indication: PROPHYLAXIS
     Route: 048
     Dates: start: 20120411, end: 20120413
  123. CODEINE PHOSPHATE [Concomitant]
     Indication: COUGH
     Route: 048
     Dates: start: 20120417, end: 20120417
  124. CODEINE PHOSPHATE [Concomitant]
     Indication: PROPHYLAXIS
     Route: 048
     Dates: start: 20120417, end: 20120417
  125. CODEINE PHOSPHATE [Concomitant]
     Indication: COUGH
     Route: 048
     Dates: start: 20120523, end: 20120523
  126. CODEINE PHOSPHATE [Concomitant]
     Indication: PROPHYLAXIS
     Route: 048
     Dates: start: 20120523, end: 20120523
  127. CODEINE PHOSPHATE [Concomitant]
     Indication: COUGH
     Route: 048
     Dates: start: 20120525, end: 20120529
  128. CODEINE PHOSPHATE [Concomitant]
     Indication: PROPHYLAXIS
     Route: 048
     Dates: start: 20120525, end: 20120529
  129. CODEINE PHOSPHATE [Concomitant]
     Indication: COUGH
     Route: 048
     Dates: start: 20120709, end: 20120713
  130. CODEINE PHOSPHATE [Concomitant]
     Indication: PROPHYLAXIS
     Route: 048
     Dates: start: 20120709, end: 20120713
  131. CODEINE PHOSPHATE [Concomitant]
     Indication: COUGH
     Route: 048
     Dates: start: 20120714, end: 20120719
  132. CODEINE PHOSPHATE [Concomitant]
     Indication: PROPHYLAXIS
     Route: 048
     Dates: start: 20120714, end: 20120719
  133. CODEINE PHOSPHATE [Concomitant]
     Indication: COUGH
     Route: 048
     Dates: start: 20120723, end: 20120724
  134. CODEINE PHOSPHATE [Concomitant]
     Indication: PROPHYLAXIS
     Route: 048
     Dates: start: 20120723, end: 20120724
  135. CODEINE PHOSPHATE [Concomitant]
     Indication: COUGH
     Route: 048
     Dates: start: 20120725, end: 20120725
  136. CODEINE PHOSPHATE [Concomitant]
     Indication: PROPHYLAXIS
     Route: 048
     Dates: start: 20120725, end: 20120725
  137. CODEINE PHOSPHATE [Concomitant]
     Indication: COUGH
     Route: 048
     Dates: start: 20120726, end: 20120730
  138. CODEINE PHOSPHATE [Concomitant]
     Indication: PROPHYLAXIS
     Route: 048
     Dates: start: 20120726, end: 20120730
  139. CODEINE PHOSPHATE [Concomitant]
     Indication: COUGH
     Route: 048
     Dates: start: 20120730, end: 20120730
  140. CODEINE PHOSPHATE [Concomitant]
     Indication: PROPHYLAXIS
     Route: 048
     Dates: start: 20120730, end: 20120730
  141. CODEINE PHOSPHATE [Concomitant]
     Indication: COUGH
     Route: 048
     Dates: start: 20120827, end: 20120917
  142. CODEINE PHOSPHATE [Concomitant]
     Indication: PROPHYLAXIS
     Route: 048
     Dates: start: 20120827, end: 20120917
  143. CODEINE PHOSPHATE [Concomitant]
     Indication: COUGH
     Route: 048
     Dates: start: 20121016, end: 20121116
  144. CODEINE PHOSPHATE [Concomitant]
     Indication: PROPHYLAXIS
     Route: 048
     Dates: start: 20121016, end: 20121116
  145. TIANEPTINE SODIUM [Concomitant]
     Indication: DEPRESSION
     Route: 048
     Dates: start: 20101028, end: 20101109
  146. TIANEPTINE SODIUM [Concomitant]
     Indication: DEPRESSION
     Route: 048
     Dates: start: 20120120, end: 20120423
  147. TIANEPTINE SODIUM [Concomitant]
     Indication: DEPRESSION
     Route: 048
     Dates: start: 20120413, end: 20120507
  148. TIANEPTINE SODIUM [Concomitant]
     Indication: DEPRESSION
     Route: 048
     Dates: start: 20120510, end: 20120510
  149. TIANEPTINE SODIUM [Concomitant]
     Indication: DEPRESSION
     Route: 048
     Dates: start: 20120521, end: 20120602
  150. TIANEPTINE SODIUM [Concomitant]
     Indication: DEPRESSION
     Route: 048
     Dates: start: 20120614, end: 20120626
  151. TIANEPTINE SODIUM [Concomitant]
     Indication: DEPRESSION
     Route: 048
     Dates: start: 20120628, end: 20120702
  152. VITIS VINIFERA EXTRACT [Concomitant]
     Indication: PROPHYLAXIS
     Route: 048
     Dates: start: 20120413, end: 20120507
  153. VITIS VINIFERA EXTRACT [Concomitant]
     Indication: PROPHYLAXIS
     Route: 048
     Dates: start: 20120510, end: 20120517
  154. VITIS VINIFERA EXTRACT [Concomitant]
     Indication: PROPHYLAXIS
     Route: 048
     Dates: start: 20120521, end: 20120602
  155. VITIS VINIFERA EXTRACT [Concomitant]
     Indication: PROPHYLAXIS
     Route: 048
     Dates: start: 20120614, end: 20120618
  156. VITIS VINIFERA EXTRACT [Concomitant]
     Indication: PROPHYLAXIS
     Route: 048
     Dates: start: 20120628, end: 20120702
  157. PETHIDINE [Concomitant]
     Indication: SEDATION
     Route: 030
     Dates: start: 20120416, end: 20120416
  158. RAMOSETRON HYDROCHLORIDE [Concomitant]
     Indication: PROPHYLAXIS
     Route: 042
     Dates: start: 20120427, end: 20120429
  159. RAMOSETRON HYDROCHLORIDE [Concomitant]
     Indication: PROPHYLAXIS
     Route: 042
     Dates: start: 20120522, end: 20120522
  160. RAMOSETRON HYDROCHLORIDE [Concomitant]
     Indication: PROPHYLAXIS
     Route: 048
     Dates: start: 20120523, end: 20120524
  161. RAMOSETRON HYDROCHLORIDE [Concomitant]
     Indication: PROPHYLAXIS
     Route: 042
     Dates: start: 20120615, end: 20120615
  162. RAMOSETRON HYDROCHLORIDE [Concomitant]
     Indication: PROPHYLAXIS
     Route: 048
     Dates: start: 20120716, end: 20120717
  163. RAMOSETRON HYDROCHLORIDE [Concomitant]
     Indication: PROPHYLAXIS
     Route: 042
     Dates: start: 20120715, end: 20120715
  164. RAMOSETRON HYDROCHLORIDE [Concomitant]
     Indication: PROPHYLAXIS
     Route: 042
     Dates: start: 20120707, end: 20120707
  165. RAMOSETRON HYDROCHLORIDE [Concomitant]
     Indication: PROPHYLAXIS
     Route: 048
     Dates: start: 20120708, end: 20120709
  166. RAMOSETRON HYDROCHLORIDE [Concomitant]
     Indication: PROPHYLAXIS
     Route: 042
     Dates: start: 20120731, end: 20120731
  167. RAMOSETRON HYDROCHLORIDE [Concomitant]
     Indication: PROPHYLAXIS
     Route: 048
     Dates: start: 20120801, end: 20120802
  168. RAMOSETRON HYDROCHLORIDE [Concomitant]
     Indication: PROPHYLAXIS
     Route: 042
     Dates: start: 20120830, end: 20120830
  169. RAMOSETRON HYDROCHLORIDE [Concomitant]
     Indication: PROPHYLAXIS
     Route: 048
     Dates: start: 20120831, end: 20120901
  170. RAMOSETRON HYDROCHLORIDE [Concomitant]
     Indication: PROPHYLAXIS
     Route: 042
     Dates: start: 20121103, end: 20121103
  171. SODIUM CHLORIDE [Concomitant]
     Indication: THERAPEUTIC PROCEDURE
     Dosage: ROUTE: THR, STRENGTH: 9 G
     Dates: start: 20120427, end: 20120427
  172. SODIUM CHLORIDE [Concomitant]
     Indication: THERAPEUTIC PROCEDURE
     Dosage: ROUTE: THR, 9MG
     Dates: start: 20120510, end: 20120510
  173. SODIUM CHLORIDE [Concomitant]
     Indication: THERAPEUTIC PROCEDURE
     Dosage: ROUTE: THR, STRENGTH: 9 G
     Dates: start: 20120521, end: 20120524
  174. SODIUM CHLORIDE [Concomitant]
     Indication: THERAPEUTIC PROCEDURE
     Dosage: ROUTE: THR
     Dates: start: 20120614, end: 20120614
  175. SODIUM CHLORIDE [Concomitant]
     Indication: THERAPEUTIC PROCEDURE
     Dosage: ROUTE: THR
     Dates: start: 20120629, end: 20120629
  176. SODIUM CHLORIDE [Concomitant]
     Indication: THERAPEUTIC PROCEDURE
     Dosage: ROUTE: THR
     Dates: start: 20120705, end: 20120705
  177. SODIUM CHLORIDE [Concomitant]
     Indication: THERAPEUTIC PROCEDURE
     Dosage: ROUTE: THR
     Dates: start: 20120429, end: 20120429
  178. SODIUM CHLORIDE [Concomitant]
     Indication: THERAPEUTIC PROCEDURE
     Route: 042
     Dates: start: 20121016, end: 20121016
  179. SODIUM CHLORIDE [Concomitant]
     Indication: THERAPEUTIC PROCEDURE
     Route: 042
     Dates: start: 20121021, end: 20121021
  180. SODIUM CHLORIDE [Concomitant]
     Indication: THERAPEUTIC PROCEDURE
     Route: 042
     Dates: start: 20121025, end: 20121025
  181. SODIUM CHLORIDE [Concomitant]
     Indication: THERAPEUTIC PROCEDURE
     Route: 042
     Dates: start: 20121102, end: 20121103
  182. ETOPOSIDE [Concomitant]
     Indication: CHEMOTHERAPY
     Route: 042
     Dates: start: 201204, end: 20120427
  183. ETOPOSIDE [Concomitant]
     Indication: CHEMOTHERAPY
     Route: 042
     Dates: start: 20120428, end: 20120428
  184. ETOPOSIDE [Concomitant]
     Indication: CHEMOTHERAPY
     Route: 042
     Dates: start: 20120429, end: 20120429
  185. ETOPOSIDE [Concomitant]
     Indication: CHEMOTHERAPY
     Route: 042
     Dates: start: 20120522, end: 20120524
  186. ETOPOSIDE [Concomitant]
     Indication: CHEMOTHERAPY
     Route: 042
     Dates: start: 20120615, end: 20120615
  187. ETOPOSIDE [Concomitant]
     Indication: CHEMOTHERAPY
     Route: 042
     Dates: start: 20120616, end: 20120616
  188. ETOPOSIDE [Concomitant]
     Indication: CHEMOTHERAPY
     Route: 042
     Dates: start: 20120707, end: 20120709
  189. ETOPOSIDE [Concomitant]
     Indication: CHEMOTHERAPY
     Route: 042
     Dates: start: 20120731, end: 20120802
  190. ETOPOSIDE [Concomitant]
     Indication: CHEMOTHERAPY
     Route: 042
     Dates: start: 20120830, end: 20120901
  191. DEXAMETHASONE [Concomitant]
     Indication: PROPHYLAXIS
     Route: 042
     Dates: start: 20120427, end: 20120427
  192. DEXAMETHASONE [Concomitant]
     Indication: PROPHYLAXIS
     Dosage: 5 mg once daily, was on 4 mg on 23-May-2012 to 24-May-2012
     Route: 042
     Dates: start: 20120522, end: 20120524
  193. DEXAMETHASONE [Concomitant]
     Indication: PROPHYLAXIS
     Route: 042
     Dates: start: 20120428, end: 20120428
  194. DEXAMETHASONE [Concomitant]
     Indication: PROPHYLAXIS
     Route: 042
     Dates: start: 20120429, end: 20120429
  195. DEXAMETHASONE [Concomitant]
     Indication: PROPHYLAXIS
     Route: 042
     Dates: start: 20120522, end: 20120522
  196. DEXAMETHASONE [Concomitant]
     Indication: PROPHYLAXIS
     Route: 042
     Dates: start: 20120615, end: 20120615
  197. DEXAMETHASONE [Concomitant]
     Indication: PROPHYLAXIS
     Route: 042
     Dates: start: 20120616, end: 20120617
  198. DEXAMETHASONE [Concomitant]
     Indication: PROPHYLAXIS
     Route: 042
     Dates: start: 20120707, end: 20120707
  199. DEXAMETHASONE [Concomitant]
     Indication: PROPHYLAXIS
     Route: 042
     Dates: start: 20120708, end: 20120709
  200. DEXAMETHASONE [Concomitant]
     Indication: PROPHYLAXIS
     Route: 042
     Dates: start: 20120731, end: 20120731
  201. DEXAMETHASONE [Concomitant]
     Indication: PROPHYLAXIS
     Route: 042
     Dates: start: 20120830, end: 20120830
  202. DEXAMETHASONE [Concomitant]
     Indication: PROPHYLAXIS
     Route: 042
     Dates: start: 20121103, end: 20121103
  203. DEXAMETHASONE [Concomitant]
     Indication: PROPHYLAXIS
     Route: 048
     Dates: start: 20121104, end: 20121105
  204. RANITIDINE HCL [Concomitant]
     Indication: PROPHYLAXIS
     Route: 042
     Dates: start: 20120427, end: 20120429
  205. RANITIDINE HCL [Concomitant]
     Indication: PROPHYLAXIS
     Route: 042
     Dates: start: 20120522, end: 20120524
  206. RANITIDINE HCL [Concomitant]
     Indication: PROPHYLAXIS
     Route: 042
     Dates: start: 20120615, end: 20120617
  207. RANITIDINE HCL [Concomitant]
     Indication: PROPHYLAXIS
     Route: 042
     Dates: start: 20120707, end: 20120709
  208. RANITIDINE HCL [Concomitant]
     Indication: PROPHYLAXIS
     Route: 048
     Dates: start: 20120710, end: 20120719
  209. RANITIDINE HCL [Concomitant]
     Indication: PROPHYLAXIS
     Route: 048
     Dates: start: 20120710, end: 20120710
  210. RANITIDINE HCL [Concomitant]
     Indication: PROPHYLAXIS
     Route: 048
     Dates: start: 20120730, end: 20120731
  211. RANITIDINE HCL [Concomitant]
     Indication: PROPHYLAXIS
     Route: 048
     Dates: start: 20120731, end: 20120806
  212. RANITIDINE HCL [Concomitant]
     Indication: PROPHYLAXIS
     Route: 048
     Dates: start: 20120719, end: 20120730
  213. RANITIDINE HCL [Concomitant]
     Indication: PROPHYLAXIS
     Route: 048
     Dates: start: 20121103, end: 20121105
  214. CARBOPLATIN [Concomitant]
     Indication: CHEMOTHERAPY
     Route: 042
     Dates: start: 20120427, end: 20120429
  215. CARBOPLATIN [Concomitant]
     Indication: CHEMOTHERAPY
     Route: 042
     Dates: start: 20120522, end: 20120522
  216. CARBOPLATIN [Concomitant]
     Indication: CHEMOTHERAPY
     Dosage: 450 MG ONCE DAILY, 135 MG ONCE DAILY
     Route: 042
     Dates: start: 20120615, end: 20120615
  217. CARBOPLATIN [Concomitant]
     Indication: CHEMOTHERAPY
     Dosage: 450 MG ONCE DAILY, 135 MG ONCE DAILY
     Route: 042
     Dates: start: 20120707, end: 20120707
  218. CARBOPLATIN [Concomitant]
     Indication: CHEMOTHERAPY
     Dosage: 135 MG OPNCE DAILY, 450 MG ONCE DAILY
     Route: 042
     Dates: start: 20120731, end: 20120731
  219. CARBOPLATIN [Concomitant]
     Indication: CHEMOTHERAPY
     Dosage: 450 MG AND 135 MG
     Route: 042
     Dates: start: 20120830, end: 20120830
  220. CARBOPLATIN [Concomitant]
     Indication: CHEMOTHERAPY
     Dosage: 135 MG AND 450 MG
     Route: 042
     Dates: start: 20121103, end: 20121103
  221. D/W [Concomitant]
     Indication: DEHYDRATION
     Dosage: 5 %
     Route: 042
     Dates: start: 20120427, end: 20120427
  222. D/W [Concomitant]
     Indication: DEHYDRATION
     Dosage: 5 %
     Route: 042
     Dates: start: 20120522, end: 20120522
  223. D/W [Concomitant]
     Indication: DEHYDRATION
     Route: 042
     Dates: start: 20120510, end: 20120511
  224. D/W [Concomitant]
     Indication: DEHYDRATION
     Route: 042
     Dates: start: 20120615, end: 20120615
  225. D/W [Concomitant]
     Indication: DEHYDRATION
     Route: 042
     Dates: start: 20120707, end: 20120707
  226. D/W [Concomitant]
     Indication: DEHYDRATION
     Route: 042
     Dates: start: 20120731, end: 20120731
  227. NYSTATINE GARGLE [Concomitant]
     Indication: PROPHYLAXIS
     Dosage: ROUTE: THR
     Dates: start: 20120430, end: 20120430
  228. NYSTATINE GARGLE [Concomitant]
     Indication: PROPHYLAXIS
     Dosage: ROUTE: THR
     Dates: start: 20120510, end: 20120510
  229. NYSTATINE GARGLE [Concomitant]
     Indication: PROPHYLAXIS
     Dosage: ROUTE: THR
     Dates: start: 20120512, end: 20120512
  230. NYSTATINE GARGLE [Concomitant]
     Indication: PROPHYLAXIS
     Dosage: ROUTE: THR
     Dates: start: 20120427, end: 20120427
  231. NYSTATINE GARGLE [Concomitant]
     Indication: PROPHYLAXIS
     Dosage: ROUTE: THR
     Dates: start: 20120521, end: 20120521
  232. NYSTATINE GARGLE [Concomitant]
     Indication: PROPHYLAXIS
     Dosage: ROUTE: THR
     Dates: start: 20120614, end: 20120614
  233. NYSTATINE GARGLE [Concomitant]
     Indication: PROPHYLAXIS
     Dosage: ROUTE: THR
     Dates: start: 20120629, end: 20120629
  234. NYSTATINE GARGLE [Concomitant]
     Indication: PROPHYLAXIS
     Dosage: ROUTE: THR
     Dates: start: 20120705, end: 20120705
  235. NYSTATINE GARGLE [Concomitant]
     Indication: PROPHYLAXIS
     Dosage: ROUTE: THR
     Dates: start: 20120712, end: 20120712
  236. NYSTATINE GARGLE [Concomitant]
     Indication: PROPHYLAXIS
     Dosage: ROUTE: THR
     Dates: start: 20120713, end: 20120713
  237. NYSTATINE GARGLE [Concomitant]
     Indication: PROPHYLAXIS
     Dosage: ROUTE: THR
     Dates: start: 20120719, end: 20120723
  238. NYSTATINE GARGLE [Concomitant]
     Indication: PROPHYLAXIS
     Dosage: ROUTE: THR
     Dates: start: 20120730, end: 20120809
  239. NYSTATINE GARGLE [Concomitant]
     Indication: PROPHYLAXIS
     Dosage: ROUTE: THR
     Dates: start: 20121016, end: 20121016
  240. NYSTATINE GARGLE [Concomitant]
     Indication: PROPHYLAXIS
     Dosage: ROUTE: THR
     Dates: start: 20121021, end: 20121021
  241. NYSTATINE GARGLE [Concomitant]
     Indication: PROPHYLAXIS
     Dosage: ROUTE: THR
     Dates: start: 20121025, end: 20121025
  242. NYSTATINE GARGLE [Concomitant]
     Indication: PROPHYLAXIS
     Dosage: ROUTE: THR
     Dates: start: 20121102, end: 20121102
  243. NYSTATINE GARGLE [Concomitant]
     Indication: PROPHYLAXIS
     Dosage: ROUTE: THR
     Dates: start: 20121105, end: 20121105
  244. MAGNESIUM HYDROXIDE [Concomitant]
     Indication: CONSTIPATION
     Route: 048
     Dates: start: 20041104, end: 20110425
  245. MAGNESIUM HYDROXIDE [Concomitant]
     Indication: CONSTIPATION
     Route: 048
     Dates: start: 20120428, end: 20120507
  246. MAGNESIUM HYDROXIDE [Concomitant]
     Indication: CONSTIPATION
     Route: 048
     Dates: start: 20120510, end: 20120517
  247. MAGNESIUM HYDROXIDE [Concomitant]
     Indication: CONSTIPATION
     Route: 048
     Dates: start: 20120521, end: 20120521
  248. MAGNESIUM HYDROXIDE [Concomitant]
     Indication: CONSTIPATION
     Route: 048
     Dates: start: 20120614, end: 20120618
  249. MAGNESIUM HYDROXIDE [Concomitant]
     Indication: CONSTIPATION
     Route: 048
     Dates: start: 20120804, end: 20120804
  250. MAGNESIUM HYDROXIDE [Concomitant]
     Indication: CONSTIPATION
     Route: 048
     Dates: start: 20120817, end: 20120827
  251. BISACODYL [Concomitant]
     Indication: CONSTIPATION
     Route: 054
     Dates: start: 20120429, end: 20120429
  252. VENLAFAXINE HYDROCHLORIDE [Concomitant]
     Indication: DEPRESSION
     Route: 048
     Dates: start: 20120429, end: 20120507
  253. VENLAFAXINE HYDROCHLORIDE [Concomitant]
     Indication: DEPRESSION
     Route: 048
     Dates: start: 20120510, end: 20120517
  254. VENLAFAXINE HYDROCHLORIDE [Concomitant]
     Indication: DEPRESSION
     Route: 048
     Dates: start: 20120521, end: 20120602
  255. VENLAFAXINE HYDROCHLORIDE [Concomitant]
     Indication: DEPRESSION
     Route: 048
     Dates: start: 20120614, end: 20120626
  256. VENLAFAXINE HYDROCHLORIDE [Concomitant]
     Indication: DEPRESSION
     Route: 048
     Dates: start: 20120628, end: 20120628
  257. VENLAFAXINE HYDROCHLORIDE [Concomitant]
     Indication: DEPRESSION
     Route: 048
     Dates: start: 20120629, end: 20120629
  258. VENLAFAXINE HYDROCHLORIDE [Concomitant]
     Indication: DEPRESSION
     Route: 048
     Dates: start: 20120630, end: 20120709
  259. VENLAFAXINE HYDROCHLORIDE [Concomitant]
     Indication: DEPRESSION
     Route: 048
     Dates: start: 20121016, end: 20121113
  260. LACTULOSE [Concomitant]
     Indication: CONSTIPATION
     Route: 048
     Dates: start: 20120430, end: 20120506
  261. LACTULOSE [Concomitant]
     Indication: CONSTIPATION
     Route: 048
     Dates: start: 20120725, end: 20120729
  262. LACTULOSE [Concomitant]
     Indication: CONSTIPATION
     Route: 048
     Dates: start: 20120828, end: 20120831
  263. LACTULOSE [Concomitant]
     Indication: CONSTIPATION
     Route: 048
     Dates: start: 20121021, end: 20121021
  264. LACTULOSE [Concomitant]
     Indication: CONSTIPATION
     Route: 048
     Dates: start: 20121105, end: 20121105
  265. BENZYDAMINE HCL [Concomitant]
     Indication: PROPHYLAXIS
     Dosage: ROUTE: THR
     Dates: start: 20120427, end: 20120430
  266. BENZYDAMINE HCL [Concomitant]
     Indication: PROPHYLAXIS
     Route: 048
     Dates: start: 20120430, end: 20120430
  267. BENZYDAMINE HCL [Concomitant]
     Indication: PROPHYLAXIS
     Route: 048
     Dates: start: 20120521, end: 20120524
  268. BENZYDAMINE HCL [Concomitant]
     Indication: PROPHYLAXIS
     Route: 048
     Dates: start: 20120512, end: 20120512
  269. BENZYDAMINE HCL [Concomitant]
     Indication: PROPHYLAXIS
     Dosage: 100 MG/ 150 MG
     Route: 048
     Dates: start: 20120510, end: 20120510
  270. BENZYDAMINE HCL [Concomitant]
     Indication: PROPHYLAXIS
     Dosage: ROUTE: THR
     Dates: start: 20120614, end: 20120614
  271. BENZYDAMINE HCL [Concomitant]
     Indication: PROPHYLAXIS
     Dosage: ROUTE: THR
     Dates: start: 20120705, end: 20120705
  272. BENZYDAMINE HCL [Concomitant]
     Indication: PROPHYLAXIS
     Dosage: ROUTE: THR
     Dates: start: 20120710, end: 20120710
  273. BENZYDAMINE HCL [Concomitant]
     Indication: PROPHYLAXIS
     Dosage: ROUTE: THR
     Dates: start: 20120713, end: 20120713
  274. BENZYDAMINE HCL [Concomitant]
     Indication: PROPHYLAXIS
     Dosage: ROUTE: THR
     Dates: start: 20120719, end: 20120723
  275. BENZYDAMINE HCL [Concomitant]
     Indication: PROPHYLAXIS
     Dosage: ROUTE: THR
     Dates: start: 20120730, end: 20120809
  276. BENZYDAMINE HCL [Concomitant]
     Indication: PROPHYLAXIS
     Dosage: ROUTE : THR
     Dates: start: 20121016, end: 20121016
  277. BENZYDAMINE HCL [Concomitant]
     Indication: PROPHYLAXIS
     Dosage: ROUTE: THR
     Dates: start: 20121021, end: 20121021
  278. BENZYDAMINE HCL [Concomitant]
     Indication: PROPHYLAXIS
     Dosage: ROUTE: THR
     Dates: start: 20121025, end: 20121025
  279. BENZYDAMINE HCL [Concomitant]
     Indication: PROPHYLAXIS
     Dosage: ROUTE: THR
     Dates: start: 20121102, end: 20121102
  280. MULTI BLUE [Concomitant]
     Indication: MINERAL SUPPLEMENTATION
     Route: 042
     Dates: start: 20120414, end: 20120414
  281. MULTI BLUE [Concomitant]
     Indication: MINERAL SUPPLEMENTATION
     Route: 042
     Dates: start: 20120721, end: 20120721
  282. MULTI BLUE [Concomitant]
     Indication: MINERAL SUPPLEMENTATION
     Route: 042
     Dates: start: 20120825, end: 20120825
  283. MULTI BLUE [Concomitant]
     Indication: MINERAL SUPPLEMENTATION
     Route: 042
     Dates: start: 20121021, end: 20121021
  284. MULTI BLUE [Concomitant]
     Indication: MINERAL SUPPLEMENTATION
     Route: 042
     Dates: start: 20121103, end: 20121103
  285. ACETAMINOPHEN [Concomitant]
     Indication: PROPHYLAXIS
     Route: 048
     Dates: start: 20120423, end: 20120424
  286. ACETAMINOPHEN [Concomitant]
     Indication: PROPHYLAXIS
     Route: 048
     Dates: start: 20121018, end: 20121018

REACTIONS (2)
  - Lung neoplasm malignant [Fatal]
  - Leukopenia [Recovered/Resolved]
